FAERS Safety Report 23339049 (Version 1)
Quarter: 2023Q4

REPORT INFORMATION
  Report Type: Spontaneous
  Country: US (occurrence: US)
  Receive Date: 20231226
  Receipt Date: 20231226
  Transmission Date: 20240110
  Serious: No
  Sender: FDA-Public Use
  Company Number: US-BRISTOL-MYERS SQUIBB COMPANY-2023-185619

PATIENT
  Age: 25 Year
  Sex: Male

DRUGS (3)
  1. SPRYCEL [Suspect]
     Active Substance: DASATINIB
     Indication: Chronic myeloid leukaemia
     Route: 048
  2. SPRYCEL [Suspect]
     Active Substance: DASATINIB
     Indication: Acute leukaemia
  3. SPRYCEL [Suspect]
     Active Substance: DASATINIB
     Indication: Myeloid leukaemia

REACTIONS (2)
  - Somnolence [Unknown]
  - Dizziness [Unknown]
